FAERS Safety Report 5482174-7 (Version None)
Quarter: 2007Q4

REPORT INFORMATION
  Report Type: 
  Country: None (occurrence: None)
  Receive Date: 20071005
  Receipt Date: 20070928
  Transmission Date: 20080405
  Serious: Yes (Hospitalization)
  Sender: FDA-Public Use
  Company Number: 2007SP019810

PATIENT
  Age: 51 Year
  Sex: Female

DRUGS (2)
  1. PEGETRON (PEGINTERFERON ALFA-2B W/RIBAVIRIN) (PEGYLATED INTERFERON ALF [Suspect]
     Indication: HEPATITIS C
     Dosage: SC; PO
     Route: 058
  2. CELEXA [Concomitant]

REACTIONS (2)
  - BRAIN ABSCESS [None]
  - MUSCULAR WEAKNESS [None]
